FAERS Safety Report 4867823-6 (Version None)
Quarter: 2005Q4

REPORT INFORMATION
  Report Type: 
  Country: None (occurrence: None)
  Receive Date: 20051228
  Receipt Date: 20051208
  Transmission Date: 20060501
  Serious: Yes (Hospitalization, Other)
  Sender: FDA-Public Use
  Company Number: US-MERCK-0512USA01566

PATIENT
  Age: 34 Year
  Sex: Female
  Weight: 107 kg

DRUGS (8)
  1. VIOXX [Suspect]
     Indication: ARTHRITIS
     Route: 048
     Dates: start: 20010926, end: 20021207
  2. ALEVE [Concomitant]
     Route: 065
  3. LORATADINE [Concomitant]
     Route: 065
  4. CIPRO [Concomitant]
     Route: 065
  5. FAMVIR [Concomitant]
     Route: 065
  6. IBUPROFEN [Concomitant]
     Route: 065
  7. NAPROXEN [Concomitant]
     Route: 065
  8. TYLENOL [Concomitant]
     Route: 065

REACTIONS (10)
  - CEREBROVASCULAR ACCIDENT [None]
  - COAGULOPATHY [None]
  - DYSPNOEA [None]
  - GASTRIC DISORDER [None]
  - HYPERTENSION [None]
  - MIGRAINE [None]
  - MYOCARDIAL INFARCTION [None]
  - PYREXIA [None]
  - ULCER HAEMORRHAGE [None]
  - UTERINE LEIOMYOMA [None]
